FAERS Safety Report 23180565 (Version 1)
Quarter: 2023Q4

REPORT INFORMATION
  Report Type: Spontaneous
  Country: US (occurrence: None)
  Receive Date: 20231114
  Receipt Date: 20231114
  Transmission Date: 20240110
  Serious: Yes (Hospitalization, Other)
  Sender: FDA-Public Use
  Company Number: US-Unichem Pharmaceuticals (USA) Inc-UCM202311-001370

PATIENT
  Age: 95 Year
  Sex: Female

DRUGS (1)
  1. ALLOPURINOL [Suspect]
     Active Substance: ALLOPURINOL
     Indication: Product used for unknown indication
     Route: 048

REACTIONS (6)
  - Eye disorder [Recovering/Resolving]
  - Staphylococcal bacteraemia [Unknown]
  - Cellulitis [Recovered/Resolved]
  - Visual impairment [Recovering/Resolving]
  - Acute kidney injury [Unknown]
  - Stevens-Johnson syndrome [Recovered/Resolved]
